FAERS Safety Report 6025476-8 (Version None)
Quarter: 2008Q4

REPORT INFORMATION
  Report Type: 
  Country: None (occurrence: None)
  Receive Date: 20081229
  Receipt Date: 20081229
  Transmission Date: 20090506
  Serious: Yes (Hospitalization)
  Sender: FDA-Public Use
  Company Number: None

PATIENT
  Age: 26 Year
  Sex: Female
  Weight: 56.6996 kg

DRUGS (1)
  1. RISPERDAL [Suspect]
     Indication: BIPOLAR I DISORDER
     Dosage: 1MG TABS 1 EVERY EVENING PO
     Route: 048
     Dates: start: 20081205, end: 20081218

REACTIONS (6)
  - ALCOHOL ABUSE [None]
  - CRYING [None]
  - MANIA [None]
  - NEGATIVE THOUGHTS [None]
  - SCREAMING [None]
  - SELF INJURIOUS BEHAVIOUR [None]
